FAERS Safety Report 12767040 (Version 1)
Quarter: 2016Q3

REPORT INFORMATION
  Report Type: Spontaneous
  Country: IT (occurrence: IT)
  Receive Date: 20160921
  Receipt Date: 20160921
  Transmission Date: 20161109
  Serious: Yes (Other)
  Sender: FDA-Public Use
  Company Number: IT-TEVA-693135ACC

PATIENT
  Age: 76 Year
  Sex: Female

DRUGS (1)
  1. CLOPIDOGREL TEVA - 75 MG COMPRESSA RIVESTITA CON FILM - TEVA B.V . [Suspect]
     Active Substance: CLOPIDOGREL BISULFATE
     Indication: ISCHAEMIC HEART DISEASE PROPHYLAXIS
     Dosage: 75 MG DAILY
     Route: 048
     Dates: start: 20160116, end: 20160219

REACTIONS (4)
  - Gastric disorder [Recovered/Resolved]
  - Tachycardia [Recovered/Resolved]
  - Cardiac failure [Recovered/Resolved]
  - Dyspepsia [Recovered/Resolved]

NARRATIVE: CASE EVENT DATE: 20160116
